FAERS Safety Report 13736612 (Version 2)
Quarter: 2017Q3

REPORT INFORMATION
  Report Type: Spontaneous
  Country: US (occurrence: US)
  Receive Date: 20170710
  Receipt Date: 20170906
  Transmission Date: 20171127
  Serious: Yes (Hospitalization)
  Sender: FDA-Public Use
  Company Number: US-BAYER-2017-127312

PATIENT
  Age: 71 Year
  Sex: Male

DRUGS (2)
  1. XOFIGO [Suspect]
     Active Substance: RADIUM RA-223 DICHLORIDE
     Indication: PROSTATIC SPECIFIC ANTIGEN INCREASED
     Dosage: 146.57 ?CI
     Route: 042
     Dates: start: 20170706, end: 20170706
  2. XOFIGO [Suspect]
     Active Substance: RADIUM RA-223 DICHLORIDE
     Indication: PROSTATE CANCER
     Dosage: 153.25 ?CI
     Route: 042
     Dates: start: 20170608, end: 20170608

REACTIONS (7)
  - Vomiting [Unknown]
  - Pain [None]
  - Cerebrovascular accident [Unknown]
  - Bone pain [Unknown]
  - Dehydration [None]
  - Nausea [Unknown]
  - Diarrhoea [None]
